FAERS Safety Report 18471389 (Version 3)
Quarter: 2020Q4

REPORT INFORMATION
  Report Type: Report from Study
  Country: US (occurrence: US)
  Receive Date: 20201106
  Receipt Date: 20201118
  Transmission Date: 20210114
  Serious: No
  Sender: FDA-Public Use
  Company Number: US-SA-2020SA311612

PATIENT

DRUGS (7)
  1. DUPILUMAB [Suspect]
     Active Substance: DUPILUMAB
     Indication: NASAL POLYPS
     Dosage: 600 MG, 1X
     Route: 058
     Dates: start: 20201005, end: 20201005
  2. DUPILUMAB [Suspect]
     Active Substance: DUPILUMAB
     Indication: NASAL POLYPS
     Dosage: 600 MG, 1X
     Route: 058
     Dates: start: 20201005, end: 20201005
  3. BENRALIZUMAB. [Concomitant]
     Active Substance: BENRALIZUMAB
     Dosage: UNK
     Route: 065
  4. DUPILUMAB [Suspect]
     Active Substance: DUPILUMAB
     Indication: NASAL POLYPS
     Dosage: 300 MG, QOW
     Route: 058
     Dates: start: 20201102
  5. DUPILUMAB [Suspect]
     Active Substance: DUPILUMAB
     Dosage: 300 MG, QOW
     Route: 058
     Dates: start: 20201019, end: 20201019
  6. DUPILUMAB [Suspect]
     Active Substance: DUPILUMAB
     Dosage: 300 MG, QOW
     Route: 058
     Dates: start: 20201019, end: 20201019
  7. DUPILUMAB [Suspect]
     Active Substance: DUPILUMAB
     Indication: NASAL POLYPS
     Dosage: 300 MG, QOW
     Route: 058
     Dates: start: 20201102

REACTIONS (8)
  - Injection site reaction [Not Recovered/Not Resolved]
  - Injection site warmth [Recovered/Resolved]
  - Pain [Recovered/Resolved]
  - Injection site erythema [Not Recovered/Not Resolved]
  - Injection site pruritus [Recovered/Resolved]
  - Injection site discolouration [Not Recovered/Not Resolved]
  - Injection site swelling [Recovered/Resolved]
  - Off label use [Unknown]

NARRATIVE: CASE EVENT DATE: 2020
